FAERS Safety Report 7597615-9 (Version None)
Quarter: 2011Q3

REPORT INFORMATION
  Report Type: 
  Country: None (occurrence: None)
  Receive Date: 20110708
  Receipt Date: 20110630
  Transmission Date: 20111222
  Serious: Yes (Other)
  Sender: FDA-Public Use
  Company Number: US-US-EMD SERONO, INC.-7035265

PATIENT
  Sex: Female
  Weight: 84 kg

DRUGS (3)
  1. MOBIC [Suspect]
     Indication: ARTHRITIS
     Route: 048
     Dates: end: 20101227
  2. MOBIC [Suspect]
  3. REBIF [Suspect]
     Indication: MULTIPLE SCLEROSIS
     Route: 058
     Dates: start: 20100803

REACTIONS (5)
  - HEPATIC ENZYME INCREASED [None]
  - INFLUENZA LIKE ILLNESS [None]
  - INJECTION SITE PAIN [None]
  - INJECTION SITE ERYTHEMA [None]
  - BLOOD CREATINE INCREASED [None]
